FAERS Safety Report 18456816 (Version 1)
Quarter: 2020Q4

REPORT INFORMATION
  Report Type: Spontaneous
  Country: US (occurrence: US)
  Receive Date: 20201102
  Receipt Date: 20201102
  Transmission Date: 20210114
  Serious: Yes (Death)
  Sender: FDA-Public Use
  Company Number: None

PATIENT
  Age: 41 Year
  Sex: Male
  Weight: 217.9 kg

DRUGS (22)
  1. METRONIDAZOLE. [Concomitant]
     Active Substance: METRONIDAZOLE
     Dates: start: 20200422, end: 20200430
  2. LORAZEPAM DRIP [Concomitant]
     Dates: start: 20200423, end: 20200429
  3. LOVENOX [Concomitant]
     Active Substance: ENOXAPARIN SODIUM
     Dates: start: 20200415, end: 20200417
  4. DOPAMINE [Concomitant]
     Active Substance: DOPAMINE HYDROCHLORIDE
     Dates: start: 20200415, end: 20200415
  5. ZOSYN [Concomitant]
     Active Substance: PIPERACILLIN SODIUM\TAZOBACTAM SODIUM
     Dates: start: 20200415, end: 20200502
  6. CHOLECALCIFEROL [Concomitant]
     Active Substance: CHOLECALCIFEROL
     Dates: start: 20200414, end: 20200421
  7. CALCITRIOL. [Concomitant]
     Active Substance: CALCITRIOL
     Dates: start: 20200418, end: 20200421
  8. PROTONIX [Concomitant]
     Active Substance: PANTOPRAZOLE SODIUM
     Dates: start: 20200421, end: 20200502
  9. ZYVOX [Concomitant]
     Active Substance: LINEZOLID
     Dates: start: 20200414, end: 20200428
  10. NEPHROCAPS [Concomitant]
     Active Substance: ASCORBIC ACID\BIOTIN\CYANOCOBALAMIN\FOLIC ACID\NIACIN\PANTOTHENIC ACID\PYRIDOXINE\RIBOFLAVIN\THIAMINE
     Dates: start: 20200414, end: 20200421
  11. FAMOTIDINE. [Concomitant]
     Active Substance: FAMOTIDINE
     Dates: start: 20200414, end: 20200417
  12. TORSEMIDE. [Concomitant]
     Active Substance: TORSEMIDE
     Dates: start: 20200418, end: 20200419
  13. METOPROLOL. [Concomitant]
     Active Substance: METOPROLOL
     Dates: start: 20200416, end: 20200421
  14. FUROSEMIDE IV [Concomitant]
     Dates: start: 20200426, end: 20200430
  15. LOKELMA [Suspect]
     Active Substance: SODIUM ZIRCONIUM CYCLOSILICATE
     Indication: HYPERKALAEMIA
     Route: 048
     Dates: start: 20200417, end: 20200421
  16. SUCRALFATE. [Concomitant]
     Active Substance: SUCRALFATE
     Dates: start: 20200415, end: 20200421
  17. SODIM BICARBONATE [Concomitant]
     Dates: start: 20200418, end: 20200423
  18. FLORASTOR [Concomitant]
     Active Substance: SACCHAROMYCES CEREVISIAE
     Dates: start: 20200414, end: 20200421
  19. DIGOXIN. [Concomitant]
     Active Substance: DIGOXIN
     Dates: start: 20200414, end: 20200415
  20. TOLVAPTAN [Concomitant]
     Active Substance: TOLVAPTAN
     Dates: start: 20200420, end: 20200421
  21. PHYTONADIONE. [Concomitant]
     Active Substance: PHYTONADIONE
     Dates: start: 20200418, end: 20201019
  22. LEVAQUIN [Concomitant]
     Active Substance: LEVOFLOXACIN
     Dates: start: 20200414, end: 20200415

REACTIONS (1)
  - Gastric perforation [None]

NARRATIVE: CASE EVENT DATE: 20200422
